FAERS Safety Report 9423563 (Version 3)
Quarter: 2013Q4

REPORT INFORMATION
  Report Type: Spontaneous
  Country: US (occurrence: US)
  Receive Date: 20130726
  Receipt Date: 20131212
  Transmission Date: 20140711
  Serious: Yes (Hospitalization, Congenital Anomaly)
  Sender: FDA-Public Use
  Company Number: US-GLAXOSMITHKLINE-A1035122A

PATIENT
  Age: 0 Day
  Sex: Female
  Weight: 2.9 kg

DRUGS (1)
  1. WELLBUTRIN SR [Suspect]
     Indication: PRODUCT USED FOR UNKNOWN INDICATION
     Dosage: 150MG TWICE PER DAY
     Route: 064
     Dates: start: 20030226, end: 20031023

REACTIONS (7)
  - Atrial septal defect [Unknown]
  - Ventricular septal defect [Unknown]
  - Anomalous pulmonary venous connection [Unknown]
  - Cardiac failure congestive [Unknown]
  - Patent ductus arteriosus [Unknown]
  - Atrial septal defect [Unknown]
  - Foetal exposure during pregnancy [Unknown]
